FAERS Safety Report 9764369 (Version 4)
Quarter: 2014Q2

REPORT INFORMATION
  Report Type: Spontaneous
  Country: US (occurrence: US)
  Receive Date: 20131217
  Receipt Date: 20140403
  Transmission Date: 20141212
  Serious: Yes (Hospitalization)
  Sender: FDA-Public Use
  Company Number: US-BIOGENIDEC-2013BI119691

PATIENT
  Age: 55 Year
  Sex: Male

DRUGS (1)
  1. TYSABRI [Suspect]
     Indication: MULTIPLE SCLEROSIS
     Route: 042
     Dates: start: 20070509

REACTIONS (5)
  - Sepsis [Not Recovered/Not Resolved]
  - Urinary tract infection [Recovered/Resolved]
  - Drug effect decreased [Not Recovered/Not Resolved]
  - Multiple sclerosis [Unknown]
  - Fatigue [Unknown]
